FAERS Safety Report 5850741-4 (Version None)
Quarter: 2008Q3

REPORT INFORMATION
  Report Type: 
  Country: None (occurrence: None)
  Receive Date: 20080819
  Receipt Date: 20080819
  Transmission Date: 20090109
  Serious: Yes (Death)
  Sender: FDA-Public Use
  Company Number: None

PATIENT
  Age: 16 Year
  Sex: Male
  Weight: 75.2971 kg

DRUGS (4)
  1. SINGULAIR [Suspect]
     Indication: ASTHMA
     Dosage: 1 TABLET DAILY PO
     Route: 048
     Dates: start: 20031013, end: 20060821
  2. SINGULAIR [Suspect]
     Indication: MULTIPLE ALLERGIES
     Dosage: 1 TABLET DAILY PO
     Route: 048
     Dates: start: 20031013, end: 20060821
  3. ADVAUR [Concomitant]
  4. ALBUTERAL [Concomitant]

REACTIONS (1)
  - COMPLETED SUICIDE [None]
